FAERS Safety Report 8434947-6 (Version None)
Quarter: 2012Q2

REPORT INFORMATION
  Report Type: 
  Country: None (occurrence: None)
  Receive Date: 20120614
  Receipt Date: 20120607
  Transmission Date: 20120825
  Serious: No
  Sender: FDA-Public Use
  Company Number: US-PFIZER INC-2012136023

PATIENT
  Sex: Male

DRUGS (1)
  1. VIAGRA [Suspect]
     Indication: PROSTATIC DISORDER
     Dosage: 50 MG, UNK
     Route: 048

REACTIONS (1)
  - NO ADVERSE EVENT [None]
